FAERS Safety Report 15611382 (Version 1)
Quarter: 2018Q4

REPORT INFORMATION
  Report Type: Spontaneous
  Country: US (occurrence: US)
  Receive Date: 20181113
  Receipt Date: 20181113
  Transmission Date: 20190205
  Serious: No
  Sender: FDA-Public Use
  Company Number: US-IPSEN BIOPHARMACEUTICALS, INC.-2018-17291

PATIENT
  Age: 55 Year
  Sex: Male
  Weight: 88.45 kg

DRUGS (5)
  1. FISH OIL [Concomitant]
     Active Substance: FISH OIL
  2. SUPREP BOWEL PREP [Suspect]
     Active Substance: MAGNESIUM SULFATE\POTASSIUM SULFATE\SODIUM SULFATE
     Indication: COLONOSCOPY
     Dosage: 2 X 6 OZ. BOTTLE 2 X PO
     Route: 048
     Dates: start: 20181025, end: 20181026
  3. GLUCOSAMINE [Concomitant]
     Active Substance: GLUCOSAMINE
  4. ASPIRIN. [Concomitant]
     Active Substance: ASPIRIN
  5. METOPROLOL. [Concomitant]
     Active Substance: METOPROLOL

REACTIONS (3)
  - Prescribed overdose [Unknown]
  - Abdominal discomfort [Recovered/Resolved]
  - Nausea [Recovering/Resolving]

NARRATIVE: CASE EVENT DATE: 20181026
